FAERS Safety Report 7600262-3 (Version None)
Quarter: 2011Q3

REPORT INFORMATION
  Report Type: 
  Country: None (occurrence: None)
  Receive Date: 20110711
  Receipt Date: 20110628
  Transmission Date: 20111222
  Serious: Yes (Other)
  Sender: FDA-Public Use
  Company Number: CO-SANOFI-AVENTIS-2011SA043024

PATIENT
  Age: 45 Year
  Sex: Female

DRUGS (4)
  1. CARBAMAZEPINE [Concomitant]
     Route: 048
  2. ARAVA [Suspect]
     Indication: RHEUMATOID ARTHRITIS
     Route: 048
     Dates: start: 20110601, end: 20110601
  3. TOPIRAMATE [Concomitant]
     Route: 048
  4. CLOBAZAM [Concomitant]
     Route: 048

REACTIONS (1)
  - CONVULSION [None]
